FAERS Safety Report 8104276-9 (Version None)
Quarter: 2012Q1

REPORT INFORMATION
  Report Type: 
  Country: None (occurrence: None)
  Receive Date: 20120130
  Receipt Date: 20120119
  Transmission Date: 20120608
  Serious: Yes (Death, Hospitalization, Other)
  Sender: FDA-Public Use
  Company Number: IN-BAXTER-2011BH040325

PATIENT
  Age: 64 Year
  Sex: Male

DRUGS (1)
  1. DIANEAL PD-2 W/ DEXTROSE 1.5% [Suspect]
     Indication: PERITONEAL DIALYSIS
     Route: 033
     Dates: end: 20111230

REACTIONS (4)
  - CARDIAC ARREST [None]
  - BLOOD PRESSURE DECREASED [None]
  - HEPATIC CIRRHOSIS [None]
  - INFECTIOUS PERITONITIS [None]
